FAERS Safety Report 9239374 (Version 5)
Quarter: 2014Q1

REPORT INFORMATION
  Report Type: Report from Study
  Country: US (occurrence: US)
  Receive Date: 20130418
  Receipt Date: 20140224
  Transmission Date: 20141002
  Serious: Yes (Hospitalization, Other)
  Sender: FDA-Public Use
  Company Number: US-ROCHE-1212598

PATIENT
  Age: 56 Year
  Sex: Female
  Weight: 57.6 kg

DRUGS (16)
  1. PEG-INTERFERON ALFA 2A [Suspect]
     Indication: HEPATITIS C
     Route: 058
     Dates: start: 20130107
  2. RIBAVIRIN [Suspect]
     Indication: HEPATITIS C
     Dosage: DOSE HELD
     Route: 048
     Dates: start: 20130107, end: 20130402
  3. TELAPREVIR [Suspect]
     Indication: HEPATITIS C
     Route: 048
     Dates: start: 20130107, end: 20130401
  4. VX-222 [Suspect]
     Indication: HEPATITIS C
     Route: 048
     Dates: start: 20130107, end: 20130401
  5. ACETAMINOPHEN [Concomitant]
  6. CALCIUM CARBONATE [Concomitant]
  7. CITALOPRAM HYDROBROMIDE [Concomitant]
  8. CYANOCOBALAMIN [Concomitant]
  9. FOLIC ACID [Concomitant]
  10. TOCOPHEROL [Concomitant]
  11. HYDROCORTISONE [Concomitant]
  12. LOPERAMIDE [Concomitant]
     Route: 065
     Dates: start: 20130409
  13. ONDANSETRON [Concomitant]
  14. PROCHLORPERAZINE [Concomitant]
  15. TRIAMCINOLONE [Concomitant]
  16. ERGOCALCIFEROL [Concomitant]

REACTIONS (2)
  - Anaemia [Recovered/Resolved]
  - Lipase increased [Recovered/Resolved]
